FAERS Safety Report 9523042 (Version 2)
Quarter: 2013Q3

REPORT INFORMATION
  Report Type: Spontaneous
  Country: US (occurrence: US)
  Receive Date: 20130913
  Receipt Date: 20130916
  Transmission Date: 20140515
  Serious: Yes (Hospitalization, Other)
  Sender: FDA-Public Use
  Company Number: CHPA2013US014118

PATIENT
  Age: 82 Year
  Sex: Female

DRUGS (7)
  1. VOLTAREN GEL [Suspect]
     Dosage: UNK, UNK
     Route: 061
     Dates: start: 2012
  2. TYLENOL [Concomitant]
     Dosage: UNK, UNK
  3. PREVACID [Concomitant]
     Dosage: UNK, UNK
  4. SYNTHROID [Concomitant]
     Dosage: UNK, UNK
  5. GLYBURIDE [Concomitant]
     Dosage: UNK, UNK
  6. LIPITOR [Concomitant]
     Dosage: UNK, UNK
  7. COUMADIN SODIUM [Concomitant]

REACTIONS (5)
  - Pulmonary fibrosis [Recovered/Resolved]
  - Scar [Not Recovered/Not Resolved]
  - Cough [Recovered/Resolved]
  - Arrhythmia [Recovered/Resolved]
  - Wrong technique in drug usage process [Unknown]
